FAERS Safety Report 4928104-5 (Version None)
Quarter: 2006Q1

REPORT INFORMATION
  Report Type: 
  Country: None (occurrence: None)
  Receive Date: 20060223
  Receipt Date: 20060210
  Transmission Date: 20060701
  Serious: Yes (Other)
  Sender: FDA-Public Use
  Company Number: ACO_0215_2006

PATIENT
  Sex: Male

DRUGS (1)
  1. SIRDALUD [Suspect]
     Dosage: 1 TAB ONCE PO
     Route: 048
     Dates: start: 20060101, end: 20060101

REACTIONS (5)
  - BONE LESION [None]
  - LOSS OF CONSCIOUSNESS [None]
  - UNEVALUABLE EVENT [None]
  - VISUAL DISTURBANCE [None]
  - VOMITING [None]
